FAERS Safety Report 12343046 (Version 3)
Quarter: 2016Q3

REPORT INFORMATION
  Report Type: Report from Study
  Country: US (occurrence: US)
  Receive Date: 20160506
  Receipt Date: 20160707
  Transmission Date: 20161109
  Serious: Yes (Hospitalization, Other)
  Sender: FDA-Public Use
  Company Number: US-BIOGEN-2015BI062238

PATIENT
  Age: 55 Year
  Sex: Male

DRUGS (3)
  1. TYSABRI [Suspect]
     Active Substance: NATALIZUMAB
     Indication: MULTIPLE SCLEROSIS
     Route: 042
  2. TYSABRI [Suspect]
     Active Substance: NATALIZUMAB
     Route: 042
     Dates: start: 20140401, end: 20150307
  3. TYSABRI [Suspect]
     Active Substance: NATALIZUMAB
     Dosage: INFUSED IN 1 HOUR
     Route: 042
     Dates: start: 20160428

REACTIONS (8)
  - Arthritis infective [Recovered/Resolved]
  - Visual impairment [Unknown]
  - Drug dose omission [Not Recovered/Not Resolved]
  - Central venous catheterisation [Recovered/Resolved]
  - Knee arthroplasty [Not Recovered/Not Resolved]
  - Patella fracture [Recovered/Resolved]
  - Gait disturbance [Unknown]
  - Staphylococcal infection [Recovered/Resolved]

NARRATIVE: CASE EVENT DATE: 201406
